FAERS Safety Report 13162885 (Version 2)
Quarter: 2019Q4

REPORT INFORMATION
  Report Type: Spontaneous
  Country: US (occurrence: US)
  Receive Date: 20170130
  Receipt Date: 20191107
  Transmission Date: 20200122
  Serious: Yes (Death, Other)
  Sender: FDA-Public Use
  Company Number: US-PFIZER INC-2017040063

PATIENT
  Age: 70 Year
  Sex: Male

DRUGS (3)
  1. VIAGRA [Suspect]
     Active Substance: SILDENAFIL CITRATE
     Indication: ERECTILE DYSFUNCTION
     Dosage: UNK
     Route: 048
     Dates: start: 2011, end: 2011
  2. VIAGRA [Suspect]
     Active Substance: SILDENAFIL CITRATE
     Dosage: 50-100 MG, AS NEEDED
     Route: 048
     Dates: start: 20131129, end: 20131129
  3. VIAGRA [Suspect]
     Active Substance: SILDENAFIL CITRATE
     Dosage: UNK
     Route: 048
     Dates: start: 2012, end: 2012

REACTIONS (3)
  - Metastatic malignant melanoma [Fatal]
  - Malignant melanoma [Unknown]
  - Depression [Unknown]

NARRATIVE: CASE EVENT DATE: 20140113
